FAERS Safety Report 14364629 (Version 1)
Quarter: 2018Q1

REPORT INFORMATION
  Report Type: Report from Study
  Country: ES (occurrence: ES)
  Receive Date: 20180108
  Receipt Date: 20180108
  Transmission Date: 20180509
  Serious: Yes (Death, Hospitalization)
  Sender: FDA-Public Use
  Company Number: ES-SA-2018SA004746

PATIENT
  Sex: Male
  Weight: 75 kg

DRUGS (2)
  1. LANTUS SOLOSTAR [Suspect]
     Active Substance: INSULIN GLARGINE
     Indication: DIABETES MELLITUS
     Route: 058
     Dates: start: 20150101
  2. SOLOSTAR [Suspect]
     Active Substance: DEVICE
     Indication: DIABETES MELLITUS
     Dates: start: 20150101

REACTIONS (3)
  - Cardiac failure [Fatal]
  - Renal failure [Fatal]
  - Multiple organ dysfunction syndrome [Fatal]
